FAERS Safety Report 9742686 (Version 2)
Quarter: 2013Q4

REPORT INFORMATION
  Report Type: Spontaneous
  Country: US (occurrence: US)
  Receive Date: 20131210
  Receipt Date: 20131210
  Transmission Date: 20140711
  Serious: No
  Sender: FDA-Public Use
  Company Number: US-GILEAD-2009-0024634

PATIENT
  Sex: Female

DRUGS (15)
  1. LETAIRIS [Suspect]
     Indication: PULMONARY ARTERIAL HYPERTENSION
     Route: 048
     Dates: start: 20090529
  2. REVATIO [Concomitant]
  3. DIGOXIN [Concomitant]
  4. FUROSEMIDE [Concomitant]
  5. COUMADIN [Concomitant]
  6. OMEPRAZOLE [Concomitant]
  7. LISINOPRIL [Concomitant]
  8. HUMALOG [Concomitant]
  9. SPIRONOLACTONE [Concomitant]
  10. TYLENOL [Concomitant]
  11. DETROL LA [Concomitant]
  12. ASPIRIN [Concomitant]
  13. CARVEDILOL [Concomitant]
  14. POTASSIUM [Concomitant]
  15. MULTIVITAMINS [Concomitant]

REACTIONS (2)
  - Hypotension [Recovering/Resolving]
  - Oedema peripheral [Recovering/Resolving]
